FAERS Safety Report 5572220-4 (Version None)
Quarter: 2007Q4

REPORT INFORMATION
  Report Type: 
  Country: None (occurrence: None)
  Receive Date: 20071221
  Receipt Date: 20071213
  Transmission Date: 20080405
  Serious: Yes (Death)
  Sender: FDA-Public Use
  Company Number: CH-GENENTECH-250782

PATIENT
  Age: 49 Year
  Sex: Male

DRUGS (3)
  1. AVASTIN [Suspect]
     Indication: POEMS SYNDROME
  2. CYCLOPHOSPHAMIDE [Concomitant]
     Indication: POEMS SYNDROME
  3. DEXAMETHASONE TAB [Concomitant]
     Indication: POEMS SYNDROME

REACTIONS (3)
  - DIARRHOEA [None]
  - MULTI-ORGAN FAILURE [None]
  - PULMONARY HYPERTENSION [None]
